FAERS Safety Report 20168827 (Version 1)
Quarter: 2021Q4

REPORT INFORMATION
  Report Type: Spontaneous
  Country: US (occurrence: US)
  Receive Date: 20211210
  Receipt Date: 20211210
  Transmission Date: 20220303
  Serious: No
  Sender: FDA-Public Use
  Company Number: US-SA-SAC20211203000654

PATIENT
  Age: 19 Year
  Sex: Male

DRUGS (2)
  1. DUPIXENT [Suspect]
     Active Substance: DUPILUMAB
     Indication: Psoriasis
     Dosage: 300 MG, QOW (INJECT 300MG (1 PEN) SUBCUTANEOUSLY EVERY TWO WEEKS STARTING ON DAY 15)
     Route: 058
  2. DUPIXENT [Suspect]
     Active Substance: DUPILUMAB
     Indication: Dermatitis atopic

REACTIONS (2)
  - Product dose omission issue [Unknown]
  - Product use in unapproved indication [Unknown]
